FAERS Safety Report 4559230-0 (Version None)
Quarter: 2005Q1

REPORT INFORMATION
  Report Type: 
  Country: None (occurrence: None)
  Receive Date: 20050124
  Receipt Date: 20030605
  Transmission Date: 20050727
  Serious: Yes (Disabling, Other)
  Sender: FDA-Public Use
  Company Number: US-MERCK-0306USA00804

PATIENT
  Age: 42 Year
  Sex: Female
  Weight: 93 kg

DRUGS (6)
  1. VIOXX [Suspect]
     Route: 048
     Dates: start: 19990617
  2. VIOXX [Suspect]
     Route: 048
  3. VIOXX [Suspect]
     Route: 048
  4. ULTRAM [Concomitant]
     Route: 065
  5. DIAZEPAM [Concomitant]
     Route: 065
  6. VITAMINS (UNSPECIFIED) [Concomitant]
     Route: 065

REACTIONS (10)
  - ADVERSE EVENT [None]
  - AMNESIA [None]
  - DISORIENTATION [None]
  - HEADACHE [None]
  - INJURY [None]
  - PAIN IN EXTREMITY [None]
  - SLEEP DISORDER [None]
  - SPEECH DISORDER [None]
  - UTERINE DISORDER [None]
  - WEIGHT DECREASED [None]
